FAERS Safety Report 6335374-8 (Version None)
Quarter: 2009Q3

REPORT INFORMATION
  Report Type: 
  Country: None (occurrence: None)
  Receive Date: 20090827
  Receipt Date: 20090825
  Transmission Date: 20100115
  Serious: Yes (Hospitalization, Other)
  Sender: FDA-Public Use
  Company Number: SP02429

PATIENT
  Age: 77 Year
  Sex: Female

DRUGS (5)
  1. VISICOL [Suspect]
     Indication: COLONOSCOPY
     Dosage: 50 GM, ORAL
     Route: 048
     Dates: start: 20090522, end: 20090522
  2. SODIUM PICOSULFATE [Concomitant]
  3. AMLODIPINE [Concomitant]
  4. LOSARTAN POTASSIUM [Concomitant]
  5. MEFRUSIDE [Concomitant]

REACTIONS (4)
  - ANAEMIA [None]
  - DECREASED APPETITE [None]
  - MALAISE [None]
  - RENAL FAILURE ACUTE [None]
